FAERS Safety Report 7309557-4 (Version None)
Quarter: 2011Q1

REPORT INFORMATION
  Report Type: 
  Country: None (occurrence: None)
  Receive Date: 20110223
  Receipt Date: 20110222
  Transmission Date: 20110831
  Serious: Yes (Other)
  Sender: FDA-Public Use
  Company Number: IE-MERCK-1101GBR00096

PATIENT
  Age: 66 Year
  Sex: Female

DRUGS (5)
  1. FOSAMAX [Suspect]
     Indication: OSTEOPOROSIS
     Route: 048
     Dates: start: 19990201, end: 20110101
  2. PREDNISOLONE [Concomitant]
     Route: 065
  3. RABEPRAZOLE SODIUM [Concomitant]
     Route: 065
  4. DICLOFENAC SODIUM [Concomitant]
     Route: 065
  5. LEFLUNOMIDE [Concomitant]
     Route: 065

REACTIONS (1)
  - FEMUR FRACTURE [None]
